FAERS Safety Report 5406723-X (Version None)
Quarter: 2007Q3

REPORT INFORMATION
  Report Type: 
  Country: None (occurrence: None)
  Receive Date: 20070802
  Receipt Date: 20070717
  Transmission Date: 20080115
  Serious: Yes (Other)
  Sender: FDA-Public Use
  Company Number: ACO_00366_2007

PATIENT
  Age: 41 Year
  Sex: Male

DRUGS (1)
  1. TIZANIDINE HCL [Suspect]
     Indication: MUSCLE SPASTICITY
     Dosage: (DF ORAL)
     Route: 048
     Dates: start: 20070614, end: 20070628

REACTIONS (1)
  - MYALGIA [None]
